FAERS Safety Report 9059887 (Version 2)
Quarter: 2013Q1

REPORT INFORMATION
  Report Type: Spontaneous
  Country: US (occurrence: US)
  Receive Date: 20130212
  Receipt Date: 20130313
  Transmission Date: 20140127
  Serious: No
  Sender: FDA-Public Use
  Company Number: US-PFIZER INC-2013055460

PATIENT
  Age: 8 Year
  Sex: Male
  Weight: 29.02 kg

DRUGS (3)
  1. CHILDRENS ADVIL [Suspect]
     Indication: PYREXIA
     Dosage: ONE AND A HALF TEASPOON, UNK
     Route: 048
     Dates: end: 20130208
  2. CHILDRENS ADVIL [Suspect]
     Dosage: UNK
  3. TYLENOL [Concomitant]
     Dosage: UNK

REACTIONS (2)
  - Product quality issue [Recovered/Resolved]
  - Rash generalised [Recovered/Resolved]
